FAERS Safety Report 11906401 (Version 1)
Quarter: 2016Q1

REPORT INFORMATION
  Report Type: Spontaneous
  Country: US (occurrence: US)
  Receive Date: 20160111
  Receipt Date: 20160111
  Transmission Date: 20160526
  Serious: No
  Sender: FDA-Public Use
  Company Number: US-PFIZER INC-2015178108

PATIENT
  Age: 53 Year
  Sex: Female

DRUGS (16)
  1. PROAIR HFA [Concomitant]
     Active Substance: ALBUTEROL SULFATE
     Indication: DYSPNOEA
     Dosage: 2 TIMES AS NEEDED
     Route: 055
  2. CHLOROQUINE. [Concomitant]
     Active Substance: CHLOROQUINE
     Dosage: UNK
  3. COREG [Concomitant]
     Active Substance: CARVEDILOL
     Indication: CARDIAC DISORDER
     Dosage: UNK
  4. XANAX [Concomitant]
     Active Substance: ALPRAZOLAM
     Dosage: 0.5 MG, (2 TO 3 TIMES A DAY)
  5. WARFARIN [Concomitant]
     Active Substance: WARFARIN
     Dosage: 4 OR 5 MG ALTERNATELY EACH DAY
  6. CARVEDILOL. [Concomitant]
     Active Substance: CARVEDILOL
     Indication: CARDIAC DISORDER
     Dosage: 12.5 MG, 2X/DAY
  7. LACTULOSE. [Concomitant]
     Active Substance: LACTULOSE
     Dosage: 2 TABLESPOONS 3 TIMES A DAY
  8. SPIRIVA [Concomitant]
     Active Substance: TIOTROPIUM BROMIDE MONOHYDRATE
     Dosage: 1 DF, 1X/DAY
     Route: 055
  9. HEPARIN [Concomitant]
     Active Substance: HEPARIN SODIUM
     Indication: DIALYSIS
     Dosage: AS NEEDED SOMETIMES THEY HAVE TO USE FOR DIALYSIS FOR KIDNEYS
  10. REVATIO [Suspect]
     Active Substance: SILDENAFIL CITRATE
     Indication: CAPILLARY DISORDER
     Dosage: 20 MG, 3X/DAY
     Route: 048
     Dates: start: 2010
  11. REVATIO [Suspect]
     Active Substance: SILDENAFIL CITRATE
     Indication: PNEUMONIA
  12. CYMBALTA [Concomitant]
     Active Substance: DULOXETINE HYDROCHLORIDE
     Dosage: 40 MG, 2X/DAY
  13. MIRTAZAPINE. [Concomitant]
     Active Substance: MIRTAZAPINE
     Dosage: 15 MG, UNK
  14. NEXIUM [Concomitant]
     Active Substance: ESOMEPRAZOLE MAGNESIUM
     Dosage: 30 MG, 2X/DAY
  15. TEMAZEPAM. [Concomitant]
     Active Substance: TEMAZEPAM
     Indication: SLEEP DISORDER
     Dosage: 50 MG, AS NEEDED [50 MG ONE TIME AT BED TIME AS NEEDED]
  16. VITAMIN D3 [Concomitant]
     Active Substance: CHOLECALCIFEROL
     Dosage: 5000 MG, UNK

REACTIONS (1)
  - Depression [Unknown]
